FAERS Safety Report 26101453 (Version 2)
Quarter: 2025Q4

REPORT INFORMATION
  Report Type: Spontaneous
  Country: EU (occurrence: EU)
  Receive Date: 20251128
  Receipt Date: 20251224
  Transmission Date: 20260118
  Serious: Yes (Death)
  Sender: ABBVIE
  Company Number: EU-ABBVIE-6565089

PATIENT
  Age: 72 Year
  Sex: Male

DRUGS (23)
  1. VENETOCLAX [Suspect]
     Active Substance: VENETOCLAX
     Indication: Acute myeloid leukaemia
     Dosage: LOW DOSES OF VEN
     Route: 048
     Dates: start: 20240124, end: 2024
  2. VENETOCLAX [Suspect]
     Active Substance: VENETOCLAX
     Indication: Acute myeloid leukaemia
     Dosage: 2ND CYCLE OF  VEN
     Route: 048
     Dates: start: 202402, end: 2024
  3. VENETOCLAX [Suspect]
     Active Substance: VENETOCLAX
     Indication: Acute myeloid leukaemia
     Dosage: PROGRESSES DESPITE VEN THERAPY
     Route: 048
     Dates: start: 202403, end: 2024
  4. VENETOCLAX [Suspect]
     Active Substance: VENETOCLAX
     Indication: Acute myeloid leukaemia
     Dosage: 1ST CYCLE OF AZA-VEN
     Route: 048
     Dates: start: 202404, end: 2024
  5. VENETOCLAX [Suspect]
     Active Substance: VENETOCLAX
     Indication: Acute myeloid leukaemia
     Dosage: 3RD CYCLE OF AZA-VEN REDUCED DOSE
     Route: 048
     Dates: start: 2024, end: 2024
  6. VENETOCLAX [Suspect]
     Active Substance: VENETOCLAX
     Indication: Acute myeloid leukaemia
     Dosage: 7TH CYCLE OF AZA-VEN
     Route: 048
     Dates: start: 20241007
  7. VENETOCLAX [Suspect]
     Active Substance: VENETOCLAX
     Indication: Acute myeloid leukaemia
     Dosage: LD-ARAC-VEN AT A REDUCED DOSE
     Route: 048
     Dates: start: 202501, end: 2025
  8. AZACITIDINE [Suspect]
     Active Substance: AZACITIDINE
     Indication: Acute myeloid leukaemia
     Dosage: AZA 75MG/M2
     Route: 065
     Dates: start: 20211130
  9. AZACITIDINE [Suspect]
     Active Substance: AZACITIDINE
     Indication: Acute myeloid leukaemia
     Dosage: 2ND CYCLE OF AZA
     Route: 065
     Dates: start: 202202, end: 2022
  10. AZACITIDINE [Suspect]
     Active Substance: AZACITIDINE
     Indication: Acute myeloid leukaemia
     Dosage: 6TH CYCLE OF AZA
     Route: 065
     Dates: start: 202206, end: 2022
  11. AZACITIDINE [Suspect]
     Active Substance: AZACITIDINE
     Indication: Acute myeloid leukaemia
     Dosage: 12TH CYCLE OF AZA
     Route: 065
     Dates: start: 202212
  12. AZACITIDINE [Suspect]
     Active Substance: AZACITIDINE
     Indication: Acute myeloid leukaemia
     Dosage: 17TH CYCLE OF AZA
     Route: 065
     Dates: start: 202306, end: 2023
  13. AZACITIDINE [Suspect]
     Active Substance: AZACITIDINE
     Indication: Acute myeloid leukaemia
     Dosage: 20TH CYCLE OF AZA
     Route: 065
     Dates: start: 202312
  14. AZACITIDINE [Suspect]
     Active Substance: AZACITIDINE
     Indication: Acute myeloid leukaemia
     Dosage: LAST ADMIN DATE:2024?1ST CYCLE OF AZA-VEN
     Route: 065
     Dates: start: 202404
  15. AZACITIDINE [Suspect]
     Active Substance: AZACITIDINE
     Indication: Acute myeloid leukaemia
     Dosage: FIRST/LAST ADMIN DATE:2024?2ND CYCLE OF AZA-VEN
     Route: 065
  16. AZACITIDINE [Suspect]
     Active Substance: AZACITIDINE
     Indication: Acute myeloid leukaemia
     Dosage: FIRST/LAST ADMIN DATE:2024?3RD CYCLE OF AZA-VEN, REDUCED THE DOSE
     Route: 065
  17. AZACITIDINE [Suspect]
     Active Substance: AZACITIDINE
     Indication: Acute myeloid leukaemia
     Dosage: LAST ADMIN DATE:2024?7TH CYCLE OF AZA-VEN
     Route: 065
     Dates: start: 20241007
  18. CYTARABINE [Suspect]
     Active Substance: CYTARABINE
     Indication: Acute myeloid leukaemia
     Route: 065
     Dates: start: 20231227
  19. CYTARABINE [Suspect]
     Active Substance: CYTARABINE
     Indication: Acute myeloid leukaemia
     Route: 065
     Dates: start: 202401, end: 2024
  20. CYTARABINE [Suspect]
     Active Substance: CYTARABINE
     Indication: Acute myeloid leukaemia
     Dosage: LOW DOSES OF LD-ARAC-VEN
     Route: 065
     Dates: start: 20240124, end: 2024
  21. CYTARABINE [Suspect]
     Active Substance: CYTARABINE
     Indication: Acute myeloid leukaemia
     Dosage: 2ND CYCLE OF LD-ARAC-VEN
     Route: 065
     Dates: start: 202402, end: 2024
  22. CYTARABINE [Suspect]
     Active Substance: CYTARABINE
     Indication: Acute myeloid leukaemia
     Dosage: PROGRESSES DESPITE LD-ARAC - VEN THERAPY
     Route: 065
     Dates: start: 202403
  23. CYTARABINE [Suspect]
     Active Substance: CYTARABINE
     Indication: Acute myeloid leukaemia
     Dosage: LD-ARAC-VEN AT A REDUCED DOSE
     Route: 065
     Dates: start: 202501

REACTIONS (6)
  - Disease progression [Fatal]
  - Disease recurrence [Unknown]
  - Infection [Unknown]
  - Cytopenia [Unknown]
  - Haemorrhage [Unknown]
  - Drug ineffective [Unknown]

NARRATIVE: CASE EVENT DATE: 20240101
